FAERS Safety Report 26060093 (Version 1)
Quarter: 2025Q4

REPORT INFORMATION
  Report Type: Spontaneous
  Country: US (occurrence: US)
  Receive Date: 20251118
  Receipt Date: 20251118
  Transmission Date: 20260118
  Serious: No
  Sender: AMGEN
  Company Number: US-AMGEN-USASP2025225811

PATIENT
  Age: 64 Year
  Sex: Female

DRUGS (6)
  1. EVENITY [Suspect]
     Active Substance: ROMOSOZUMAB-AQQG
     Indication: Product used for unknown indication
     Dosage: 210 MILLIGRAM, QMO
     Route: 058
     Dates: start: 2025
  2. ESTROGENS [Concomitant]
     Active Substance: ESTROGENS
     Indication: Epilepsy
     Dosage: 0.025 MILLIGRAM, 2 TIMES/WK
  3. ESTROGENS [Concomitant]
     Active Substance: ESTROGENS
     Indication: Menopause
  4. CARBAMAZEPINE [Concomitant]
     Active Substance: CARBAMAZEPINE
     Dosage: 10 MILLIGRAM NIGHTLY
  5. VIMPAT [Concomitant]
     Active Substance: LACOSAMIDE
     Dosage: 200 MG IN THE MORNING AND 300 MG AT NIGHT
  6. PROGESTERONE [Concomitant]
     Active Substance: PROGESTERONE
     Dosage: 100 MILLIGRAM, QD

REACTIONS (5)
  - Pain [Not Recovered/Not Resolved]
  - Hiccups [Not Recovered/Not Resolved]
  - Heart rate decreased [Not Recovered/Not Resolved]
  - Inappropriate schedule of product administration [Unknown]
  - Disturbance in attention [Not Recovered/Not Resolved]

NARRATIVE: CASE EVENT DATE: 20250702
